FAERS Safety Report 23196745 (Version 1)
Quarter: 2023Q4

REPORT INFORMATION
  Report Type: Report from Study
  Country: EG (occurrence: EG)
  Receive Date: 20231117
  Receipt Date: 20231117
  Transmission Date: 20240109
  Serious: Yes (Disabling, Other)
  Sender: FDA-Public Use
  Company Number: EG-HIKMA PHARMACEUTICALS-EG-H14001-23-67156

PATIENT

DRUGS (3)
  1. IMATINIB MESYLATE [Suspect]
     Active Substance: IMATINIB MESYLATE
     Indication: Leukaemia
     Dosage: UNKNOWN
     Route: 048
     Dates: start: 2020
  2. OLMESARTAN MEDOXOMIL [Concomitant]
     Active Substance: OLMESARTAN MEDOXOMIL
     Indication: Hypertension
     Dosage: UNKNOWN
     Route: 065
     Dates: start: 2016
  3. INSULIN NOS [Concomitant]
     Active Substance: INSULIN NOS
     Indication: Diabetes mellitus
     Dosage: UNKNOWN
     Route: 065

REACTIONS (2)
  - Finger amputation [Recovered/Resolved with Sequelae]
  - Limb injury [Recovered/Resolved with Sequelae]

NARRATIVE: CASE EVENT DATE: 20221225
